FAERS Safety Report 16588713 (Version 6)
Quarter: 2019Q3

REPORT INFORMATION
  Report Type: Spontaneous
  Country: US (occurrence: US)
  Receive Date: 20190718
  Receipt Date: 20190830
  Transmission Date: 20191004
  Serious: Yes (Life-Threatening, Hospitalization, Other)
  Sender: FDA-Public Use
  Company Number: US-B.I. PHARMACEUTICALS,INC./RIDGEFIELD-2019-US-000528

PATIENT
  Age: 49 Year
  Sex: Female
  Weight: 123 kg

DRUGS (1)
  1. JARDIANCE [Suspect]
     Active Substance: EMPAGLIFLOZIN
     Indication: TYPE 2 DIABETES MELLITUS
     Route: 065
     Dates: start: 2019, end: 201905

REACTIONS (3)
  - Drug hypersensitivity [Unknown]
  - Fournier^s gangrene [Recovering/Resolving]
  - Bacterial infection [Unknown]

NARRATIVE: CASE EVENT DATE: 20190520
